FAERS Safety Report 9202348 (Version 1)
Quarter: 2013Q2

REPORT INFORMATION
  Report Type: Spontaneous
  Country: ES (occurrence: ES)
  Receive Date: 20130401
  Receipt Date: 20130401
  Transmission Date: 20140414
  Serious: Yes (Other)
  Sender: FDA-Public Use
  Company Number: ES-ELI_LILLY_AND_COMPANY-ES201303008790

PATIENT
  Age: 52 Year
  Sex: Female

DRUGS (1)
  1. FORSTEO [Suspect]
     Indication: HUMERUS FRACTURE

REACTIONS (2)
  - Leiomyoma [Unknown]
  - Off label use [Unknown]
